FAERS Safety Report 8653960 (Version 2)
Quarter: 2012Q4

REPORT INFORMATION
  Report Type: Report from Study
  Country: CA (occurrence: CA)
  Receive Date: 20120709
  Receipt Date: 20121226
  Transmission Date: 20130627
  Serious: Yes (Hospitalization, Other)
  Sender: FDA-Public Use
  Company Number: CA-JNJFOC-20120700946

PATIENT
  Sex: Male
  Weight: 73 kg

DRUGS (4)
  1. REMICADE [Suspect]
     Indication: CROHN^S DISEASE
     Dosage: 400 (units unspecified)
     Route: 042
     Dates: start: 2007
  2. MORPHINE [Concomitant]
     Indication: PAIN
     Route: 065
  3. PERCOCET [Concomitant]
     Indication: PAIN MANAGEMENT
     Route: 065
  4. ADVIL [Concomitant]
     Indication: PAIN
     Route: 065

REACTIONS (2)
  - Nephrolithiasis [Recovered/Resolved]
  - Crohn^s disease [Unknown]
